FAERS Safety Report 9145276 (Version 1)
Quarter: 2013Q1

REPORT INFORMATION
  Report Type: Spontaneous
  Country: US (occurrence: None)
  Receive Date: 20130226
  Receipt Date: 20130226
  Transmission Date: 20140127
  Serious: Yes (Other)
  Sender: FDA-Public Use
  Company Number: None

PATIENT
  Age: 53 Year
  Sex: Male
  Weight: 131.54 kg

DRUGS (1)
  1. ATORVASTATIN [Suspect]
     Dosage: 10MG  DAILY  PO
     Route: 048
     Dates: start: 20120901, end: 20130201

REACTIONS (1)
  - Herpes simplex [None]
